FAERS Safety Report 5004782-X (Version None)
Quarter: 2006Q1

REPORT INFORMATION
  Report Type: 
  Country: None (occurrence: None)
  Receive Date: 20060321
  Receipt Date: 20051213
  Transmission Date: 20060701
  Serious: No
  Sender: FDA-Public Use
  Company Number: YPA20050637

PATIENT
  Age: 62 Year
  Sex: Female
  Weight: 81.8 kg

DRUGS (6)
  1. VESICARE [Suspect]
     Indication: URINARY INCONTINENCE
     Dosage: 5 MG, UID/QD, ORAL
     Route: 048
     Dates: start: 20051207
  2. SEIZURE MEDICATION [Concomitant]
  3. HIGH BLOOD PRESSURE MEDICATION [Concomitant]
  4. DEPRESSION MEDICATION [Concomitant]
  5. CENESTIN (ESTROGENS CONJUGATED) TABLET [Concomitant]
     Dates: end: 20051211
  6. ESTROGEN CONG. TABLET [Concomitant]
     Dates: start: 20051212

REACTIONS (1)
  - BLOOD GLUCOSE INCREASED [None]
